FAERS Safety Report 6710365-3 (Version None)
Quarter: 2010Q2

REPORT INFORMATION
  Report Type: 
  Country: None (occurrence: None)
  Receive Date: 20100504
  Receipt Date: 20100420
  Transmission Date: 20101027
  Serious: Yes (Death, Life-Threatening, Hospitalization)
  Sender: FDA-Public Use
  Company Number: DE-MYLANLABS-2010S1006908

PATIENT
  Age: 85 Year
  Sex: Male

DRUGS (6)
  1. METFORMIN HCL [Suspect]
     Indication: TYPE 2 DIABETES MELLITUS
     Route: 048
     Dates: end: 20080717
  2. CAPTOHEXAL COMP [Suspect]
     Indication: HYPERTENSION
     Dosage: 1 DF= 12.5MG CAPTOPRIL + 6.25MG HCT
     Route: 048
     Dates: start: 20080501, end: 20080717
  3. AGGRENOX [Suspect]
     Indication: CEREBROVASCULAR ACCIDENT
     Dosage: 1 DF= 200MG DIPYRIDAMOL + 25MG ASS
     Route: 048
     Dates: start: 20080501, end: 20080717
  4. TRIAMPUR [Suspect]
     Indication: HYPERTENSION
     Dosage: 1 DF= 25MG TRIAMTEREN + 12.5MG HCT
     Route: 048
     Dates: end: 20080717
  5. MADOPAR [Suspect]
     Indication: CEREBROVASCULAR ACCIDENT
     Route: 048
     Dates: end: 20080720
  6. EXELON [Concomitant]
     Indication: DEMENTIA
     Route: 048
     Dates: end: 20080720

REACTIONS (4)
  - BLOOD SODIUM INCREASED [None]
  - METABOLIC ACIDOSIS [None]
  - RENAL FAILURE ACUTE [None]
  - THROMBOCYTOPENIA [None]
